FAERS Safety Report 4896352-9 (Version None)
Quarter: 2006Q1

REPORT INFORMATION
  Report Type: 
  Country: None (occurrence: None)
  Receive Date: 20060126
  Receipt Date: 20060110
  Transmission Date: 20060701
  Serious: No
  Sender: FDA-Public Use
  Company Number: 200601IM000083

PATIENT
  Age: 13 Year
  Sex: Male

DRUGS (5)
  1. INTERFERON GAMMA-1B [Suspect]
     Indication: CHRONIC GRANULOMATOUS DISEASE
     Dosage: TIW, SUBCUTANEOUS
     Route: 058
  2. ACYCLOVIR [Concomitant]
  3. ITRACONAZOLE [Concomitant]
  4. VANCOMYCIN [Concomitant]
  5. CMV-IMMUNE GLOBULIN [Concomitant]

REACTIONS (17)
  - BLOOD GLUCOSE DECREASED [None]
  - BRAIN DEATH [None]
  - COMA [None]
  - CONJUNCTIVITIS [None]
  - ENCEPHALITIS [None]
  - EYE PAIN [None]
  - GRAFT VERSUS HOST DISEASE [None]
  - HEADACHE [None]
  - INFECTION IN AN IMMUNOCOMPROMISED HOST [None]
  - LIVER ABSCESS [None]
  - NEUTROPENIA [None]
  - PHOTOPHOBIA [None]
  - PROTEIN TOTAL DECREASED [None]
  - SIMPLE PARTIAL SEIZURES [None]
  - STAPHYLOCOCCAL ABSCESS [None]
  - STATUS EPILEPTICUS [None]
  - TREATMENT NONCOMPLIANCE [None]
